FAERS Safety Report 4503025-0 (Version None)
Quarter: 2004Q4

REPORT INFORMATION
  Report Type: 
  Country: None (occurrence: None)
  Receive Date: 20041112
  Receipt Date: 20041101
  Transmission Date: 20050328
  Serious: Yes (Other)
  Sender: FDA-Public Use
  Company Number: 2004085635

PATIENT
  Age: 71 Year
  Sex: Female
  Weight: 67.586 kg

DRUGS (1)
  1. BENADRYL [Suspect]
     Indication: ARTHROPOD BITE
     Dosage: 172 A TABLET ONE TIME, ORAL
     Route: 048
     Dates: start: 20040801, end: 20040801

REACTIONS (3)
  - OEDEMA PERIPHERAL [None]
  - SWOLLEN TONGUE [None]
  - URTICARIA [None]
